FAERS Safety Report 5635938-0 (Version None)
Quarter: 2008Q1

REPORT INFORMATION
  Report Type: 
  Country: None (occurrence: None)
  Receive Date: 20080224
  Receipt Date: 20080213
  Transmission Date: 20080703
  Serious: Yes (Other)
  Sender: FDA-Public Use
  Company Number: PHBS2008BR01562

PATIENT
  Age: 54 Year
  Sex: Female
  Weight: 66 kg

DRUGS (3)
  1. RITALIN [Suspect]
     Indication: ATTENTION DEFICIT/HYPERACTIVITY DISORDER
     Dosage: 30 MG/DAY
     Route: 048
  2. RITALIN [Suspect]
     Dosage: 20 MG, BID
     Route: 048
     Dates: start: 20070101
  3. DIAZEPAM [Concomitant]
     Dosage: 1 TAB/DAY
     Route: 048

REACTIONS (8)
  - AFFECTIVE DISORDER [None]
  - BREAST CANCER [None]
  - CONFUSIONAL STATE [None]
  - DISTURBANCE IN ATTENTION [None]
  - DRUG INEFFECTIVE [None]
  - MEMORY IMPAIRMENT [None]
  - NERVOUSNESS [None]
  - SURGERY [None]
